FAERS Safety Report 13160358 (Version 3)
Quarter: 2017Q1

REPORT INFORMATION
  Report Type: Report from Study
  Country: None (occurrence: GR)
  Receive Date: 20170127
  Receipt Date: 20170202
  Transmission Date: 20170428
  Serious: Yes (Hospitalization, Other)
  Sender: FDA-Public Use
  Company Number: GR-ABBVIE-17P-066-1855128-00

PATIENT
  Age: 62 Year
  Sex: Female

DRUGS (4)
  1. DUODOPA [Suspect]
     Active Substance: CARBIDOPA\LEVODOPA
     Indication: PARKINSON^S DISEASE
     Dosage: MORNING DOSE: 9.5ML; CONTINUOUS RATE: 2.0ML/H; EXTRA DOSE: 1.5ML
     Route: 050
     Dates: start: 20170114
  2. ZINACEF [Concomitant]
     Active Substance: CEFUROXIME SODIUM
     Indication: PRODUCT USED FOR UNKNOWN INDICATION
  3. SOLVETAN [Concomitant]
     Indication: PNEUMONIA ASPIRATION
     Route: 050
     Dates: start: 20170121
  4. APOTEL [Concomitant]
     Active Substance: ACETAMINOPHEN
     Indication: PRODUCT USED FOR UNKNOWN INDICATION
     Dates: end: 20170126

REACTIONS (5)
  - Pyrexia [Recovered/Resolved]
  - Vomiting [Unknown]
  - Pain [Recovering/Resolving]
  - Pneumonia aspiration [Recovered/Resolved]
  - Abdominal rigidity [Unknown]

NARRATIVE: CASE EVENT DATE: 20170121
